FAERS Safety Report 11711651 (Version 1)
Quarter: 2015Q4

REPORT INFORMATION
  Report Type: Spontaneous
  Country: US (occurrence: US)
  Receive Date: 20151104
  Receipt Date: 20151104
  Transmission Date: 20160304
  Serious: No
  Sender: FDA-Public Use
  Company Number: US-ELI_LILLY_AND_COMPANY-US201105003820

PATIENT
  Age: 70 Year
  Sex: Female

DRUGS (2)
  1. FORTEO [Suspect]
     Active Substance: TERIPARATIDE
     Dosage: 20 UG, QD
     Route: 065
     Dates: start: 201105
  2. FORTEO [Suspect]
     Active Substance: TERIPARATIDE
     Indication: OSTEOPOROSIS
     Dosage: 20 UG, QD
     Route: 065
     Dates: start: 20110502, end: 20110513

REACTIONS (32)
  - Orthostatic hypertension [Unknown]
  - Rash macular [Unknown]
  - Joint injury [Unknown]
  - Injection site erythema [Not Recovered/Not Resolved]
  - Hypertension [Unknown]
  - Erythema [Unknown]
  - Rash pruritic [Unknown]
  - Dizziness [Unknown]
  - Gastrointestinal disorder [Unknown]
  - Asthenia [Unknown]
  - Injection site bruising [Unknown]
  - Abdominal pain upper [Unknown]
  - Vertigo [Unknown]
  - Depression [Unknown]
  - Cough [Unknown]
  - Malaise [Unknown]
  - Rhinorrhoea [Unknown]
  - Dyspnoea [Unknown]
  - Heart rate increased [Recovered/Resolved]
  - Abdominal pain [Unknown]
  - Pain [Unknown]
  - Nausea [Unknown]
  - Presyncope [Unknown]
  - Discomfort [Unknown]
  - Insomnia [Unknown]
  - Hyperhidrosis [Not Recovered/Not Resolved]
  - Nasal congestion [Unknown]
  - Balance disorder [Unknown]
  - Myalgia [Unknown]
  - Movement disorder [Unknown]
  - Decreased appetite [Unknown]
  - Injection site rash [Unknown]

NARRATIVE: CASE EVENT DATE: 201105
